FAERS Safety Report 5550555-9 (Version None)
Quarter: 2007Q4

REPORT INFORMATION
  Report Type: 
  Country: None (occurrence: None)
  Receive Date: 20071212
  Receipt Date: 20070505
  Transmission Date: 20080405
  Serious: No
  Sender: FDA-Public Use
  Company Number: US-AMGEN-KDL223422

PATIENT
  Sex: Female

DRUGS (2)
  1. ENBREL [Suspect]
     Indication: PSORIATIC ARTHROPATHY
     Route: 058
     Dates: start: 20031001
  2. SULFASALAZINE [Concomitant]
     Route: 048
     Dates: start: 20000101

REACTIONS (3)
  - POLYP [None]
  - PSORIASIS [None]
  - PSORIATIC ARTHROPATHY [None]
